FAERS Safety Report 7226246-5 (Version None)
Quarter: 2011Q1

REPORT INFORMATION
  Report Type: 
  Country: None (occurrence: None)
  Receive Date: 20110114
  Receipt Date: 20110104
  Transmission Date: 20110831
  Serious: Yes (Hospitalization)
  Sender: FDA-Public Use
  Company Number: PHHY2011BE01008

PATIENT
  Sex: Male

DRUGS (3)
  1. ZOCOR [Concomitant]
  2. ALISKIREN [Suspect]
     Indication: HYPERTENSION
     Dosage: 150 MG DAILY
     Route: 048
  3. ASAFLOW [Concomitant]

REACTIONS (8)
  - DIARRHOEA [None]
  - ATRIAL FIBRILLATION [None]
  - PYREXIA [None]
  - LIVER DISORDER [None]
  - RENAL FAILURE [None]
  - HANTAVIRAL INFECTION [None]
  - BLOOD PRESSURE DECREASED [None]
  - BLOOD PRESSURE INCREASED [None]
